FAERS Safety Report 5163492-9 (Version None)
Quarter: 2006Q4

REPORT INFORMATION
  Report Type: 
  Country: None (occurrence: None)
  Receive Date: 20061124
  Receipt Date: 20061114
  Transmission Date: 20070319
  Serious: Yes (Hospitalization, Other)
  Sender: FDA-Public Use
  Company Number: 163-C5013-06110582

PATIENT
  Age: 26 Year
  Sex: Female
  Weight: 61.2356 kg

DRUGS (4)
  1. REVLIMID [Suspect]
     Indication: COMPLEX REGIONAL PAIN SYNDROME
     Dosage: 10 MG, DAILY, ORAL
     Route: 048
     Dates: start: 20060720, end: 20060804
  2. METHADONE HCL [Concomitant]
  3. CYMBALTA [Concomitant]
  4. PROTONIX [Concomitant]

REACTIONS (8)
  - ABDOMINAL PAIN UPPER [None]
  - ABORTION SPONTANEOUS [None]
  - DRUG EXPOSURE DURING PREGNANCY [None]
  - HEADACHE [None]
  - MALAISE [None]
  - PREGNANCY [None]
  - UNINTENDED PREGNANCY [None]
  - VOMITING [None]
